FAERS Safety Report 17263800 (Version 4)
Quarter: 2021Q3

REPORT INFORMATION
  Report Type: Spontaneous
  Country: NL (occurrence: NL)
  Receive Date: 20200113
  Receipt Date: 20210803
  Transmission Date: 20211014
  Serious: Yes (Life-Threatening, Hospitalization)
  Sender: FDA-Public Use
  Company Number: NL-MYLANLABS-2020M1002639

PATIENT
  Age: 64 Year
  Sex: Female

DRUGS (8)
  1. PALEXIA [Interacting]
     Active Substance: TAPENTADOL HYDROCHLORIDE
     Indication: POLYNEUROPATHY
     Dosage: 300 MILLIGRAM, QD (150 MG, 2/DAY)
     Route: 048
     Dates: start: 20191001, end: 20191001
  2. TRAZODON [Interacting]
     Active Substance: TRAZODONE HYDROCHLORIDE
     Indication: PRODUCT USED FOR UNKNOWN INDICATION
     Dosage: 100 MILLIGRAM, QD (50 MG, 2/DAY)
     Route: 048
  3. OXYCODONE [Interacting]
     Active Substance: OXYCODONE
     Indication: POLYNEUROPATHY
     Dosage: 50 MILLIGRAM, QD (10 MG, 5/DAY)
     Route: 048
     Dates: start: 2019, end: 20191001
  4. PALEXIA [Interacting]
     Active Substance: TAPENTADOL HYDROCHLORIDE
     Dosage: 300 MILLIGRAM, QD (150 MG, 2/DAY)
     Route: 048
  5. DULOXETINE. [Interacting]
     Active Substance: DULOXETINE
     Indication: POLYNEUROPATHY
     Dosage: 120 MILLIGRAM, QD (60 MG, 2/DAY)
     Route: 065
  6. LORAZEPAM. [Suspect]
     Active Substance: LORAZEPAM
     Indication: PRODUCT USED FOR UNKNOWN INDICATION
     Dosage: 1 DOSAGE FORM, QD, 1 DF, 1/DAY
     Route: 048
     Dates: end: 20191001
  7. OXAZEPAM. [Interacting]
     Active Substance: OXAZEPAM
     Indication: PRODUCT USED FOR UNKNOWN INDICATION
     Dosage: 20 MILLIGRAM, QD (10 MG, 2/DAY)
     Route: 048
     Dates: start: 20191001
  8. OXYCODONE [Interacting]
     Active Substance: OXYCODONE
     Dosage: UNK
     Route: 048
     Dates: start: 2019

REACTIONS (4)
  - Cardio-respiratory arrest [Recovered/Resolved]
  - Respiratory depression [Recovered/Resolved]
  - Unresponsive to stimuli [Recovered/Resolved]
  - Drug interaction [Recovered/Resolved]

NARRATIVE: CASE EVENT DATE: 20191001
